FAERS Safety Report 8008316-7 (Version None)
Quarter: 2011Q4

REPORT INFORMATION
  Report Type: 
  Country: None (occurrence: None)
  Receive Date: 20111227
  Receipt Date: 20111223
  Transmission Date: 20120403
  Serious: Yes (Death, Hospitalization)
  Sender: FDA-Public Use
  Company Number: US-B.I. PHARMACEUTICALS,INC./RIDGEFIELD-2011-BP-27407BP

PATIENT
  Sex: Male
  Weight: 85.9 kg

DRUGS (1)
  1. PRADAXA [Suspect]
     Indication: ATRIAL FIBRILLATION
     Dosage: 300 MG
     Route: 048
     Dates: start: 20110701, end: 20110923

REACTIONS (6)
  - INTESTINAL PERFORATION [None]
  - ACUTE ABDOMEN [None]
  - RENAL FAILURE ACUTE [None]
  - DEHYDRATION [None]
  - POST PROCEDURAL HAEMORRHAGE [None]
  - ABDOMINAL ABSCESS [None]
